FAERS Safety Report 10112276 (Version 1)
Quarter: 2014Q2

REPORT INFORMATION
  Report Type: Report from Study
  Country: BR (occurrence: BR)
  Receive Date: 20140425
  Receipt Date: 20140425
  Transmission Date: 20141212
  Serious: Yes (Other)
  Sender: FDA-Public Use
  Company Number: PHHY2014BR050536

PATIENT
  Sex: Male
  Weight: 66 kg

DRUGS (8)
  1. EXELON PATCH [Suspect]
     Indication: DEMENTIA
     Dosage: 4.6 MG (5 CM2), DAILY
     Route: 062
  2. EXELON PATCH [Suspect]
     Dosage: 9.5 MG (10 CM2), UNK
     Route: 062
  3. CASODEX [Concomitant]
     Indication: PROSTATIC DISORDER
     Dosage: 1 DF, DAILY
     Dates: start: 2005
  4. DIGOXIN [Concomitant]
     Indication: ARRHYTHMIA
     Dosage: 1 DF, WEEKLY
  5. ANCORON [Concomitant]
     Indication: ARRHYTHMIA
     Dosage: 1 DF, DAILY
  6. RETEMIC [Concomitant]
     Indication: URINARY TRACT DISORDER
     Dosage: 1 DF, DAILY
     Dates: start: 2005
  7. TEBONIN [Concomitant]
     Indication: NERVOUS SYSTEM DISORDER
     Dosage: 1 DF, DAILY
     Dates: start: 2005
  8. PLAVIX [Concomitant]
     Indication: FLUID RETENTION
     Dosage: 1 DF, DAILY

REACTIONS (7)
  - Diabetes mellitus [Not Recovered/Not Resolved]
  - Anaemia [Not Recovered/Not Resolved]
  - Blood cholesterol increased [Not Recovered/Not Resolved]
  - Disorientation [Not Recovered/Not Resolved]
  - Sensory loss [Not Recovered/Not Resolved]
  - Weight decreased [Not Recovered/Not Resolved]
  - Disease progression [Not Recovered/Not Resolved]
